FAERS Safety Report 7267918-6 (Version None)
Quarter: 2011Q1

REPORT INFORMATION
  Report Type: 
  Country: None (occurrence: None)
  Receive Date: 20110201
  Receipt Date: 20110121
  Transmission Date: 20110831
  Serious: Yes (Hospitalization)
  Sender: FDA-Public Use
  Company Number: US-BRISTOL-MYERS SQUIBB COMPANY-15519762

PATIENT
  Age: 54 Year
  Sex: Male
  Weight: 92 kg

DRUGS (21)
  1. MAGNESIUM [Concomitant]
     Indication: BLOOD MAGNESIUM DECREASED
     Dosage: 2400MG
     Route: 048
  2. MULTI-VITAMIN [Concomitant]
     Indication: SUPPLEMENTATION THERAPY
     Dosage: 1 DF = 1 TABS
     Route: 048
  3. ACETAMINOPHEN [Concomitant]
     Indication: HEADACHE
     Route: 048
  4. VALSARTAN [Concomitant]
     Indication: HYPERTENSION
     Route: 048
  5. CISPLATIN [Suspect]
     Indication: BLADDER CANCER
     Route: 042
     Dates: start: 20100819, end: 20110106
  6. PROCHLORPERAZINE [Concomitant]
     Indication: NAUSEA
     Route: 048
  7. AMLODIPINE [Concomitant]
     Indication: HYPERTENSION
     Route: 048
  8. ASCORBIC ACID [Concomitant]
     Indication: SUPPLEMENTATION THERAPY
     Route: 048
  9. GEMCITABINE [Suspect]
     Indication: BLADDER CANCER
     Route: 042
     Dates: start: 20100819, end: 20110106
  10. LORTAB [Concomitant]
     Indication: HEADACHE
     Dosage: 40MG
     Route: 048
  11. XANAX [Concomitant]
     Route: 048
  12. ALLOPURINOL [Concomitant]
     Indication: GOUT
     Route: 048
  13. CLOBETASOL [Concomitant]
     Indication: RASH
     Dosage: .05%:50G/WEEK
     Route: 061
  14. LORAZEPAM [Concomitant]
     Indication: NAUSEA
     Dosage: AS NEEDED
     Route: 048
  15. FILGRASTIM [Concomitant]
     Indication: NEUTROPENIA
     Dosage: DYS 2-6,9-13 OF EACH CHEMO CYCLE
     Route: 058
  16. APREPITANT [Concomitant]
     Indication: NAUSEA
     Dosage: 2 DYS STARTING DY 2 OF CHEMO
     Route: 048
  17. METOCLOPRAMIDE [Concomitant]
     Indication: NAUSEA
     Dosage: 40MG
     Route: 048
  18. ONDANSETRON [Concomitant]
     Indication: NAUSEA
     Route: 048
  19. CETUXIMAB [Suspect]
     Indication: BLADDER CANCER
     Dosage: 74.2857MG
     Route: 042
     Dates: start: 20100819, end: 20110106
  20. DIAZEPAM [Concomitant]
     Indication: ANXIETY
     Route: 048
  21. DEXAMETHASONE [Concomitant]
     Indication: NAUSEA
     Dosage: 3 DYS AT DY 2 OF CHEMO
     Route: 048

REACTIONS (2)
  - SYNCOPE [None]
  - ENTEROCOLITIS INFECTIOUS [None]
